FAERS Safety Report 10088032 (Version 1)
Quarter: 2014Q2

REPORT INFORMATION
  Report Type: Spontaneous
  Country: US (occurrence: US)
  Receive Date: 20140420
  Receipt Date: 20140420
  Transmission Date: 20141212
  Serious: No
  Sender: FDA-Public Use
  Company Number: US-009507513-1404USA009909

PATIENT
  Age: 32 Year
  Sex: Female
  Weight: 48.98 kg

DRUGS (4)
  1. NUVARING [Suspect]
     Indication: CONTRACEPTION
     Dosage: UNK
     Route: 067
     Dates: start: 20131014
  2. GUAIFENESIN [Concomitant]
  3. CODEINE [Concomitant]
  4. VICKS NYQUIL SEVERE COLD AND FLU [Concomitant]

REACTIONS (6)
  - Bronchitis [Unknown]
  - Ovulation disorder [Unknown]
  - Drug interaction [Unknown]
  - Ovulation pain [Unknown]
  - Secretion discharge [Unknown]
  - Unintended pregnancy [Unknown]
